FAERS Safety Report 11350989 (Version 1)
Quarter: 2015Q3

REPORT INFORMATION
  Report Type: Spontaneous
  Country: US (occurrence: US)
  Receive Date: 20150807
  Receipt Date: 20150807
  Transmission Date: 20151125
  Serious: No
  Sender: FDA-Public Use
  Company Number: US-JNJFOC-20141011861

PATIENT
  Age: 67 Year
  Sex: Female
  Weight: 70.31 kg

DRUGS (5)
  1. MENS ROGAINE EXTRA STRENGTH [Suspect]
     Active Substance: MINOXIDIL
     Route: 061
  2. LIDEX [Suspect]
     Active Substance: FLUOCINONIDE
     Indication: SKIN DISORDER
  3. IRON [Concomitant]
     Active Substance: IRON
     Indication: SKIN LESION
     Route: 065
  4. PROPECIA [Concomitant]
     Active Substance: FINASTERIDE
     Indication: SKIN LESION
     Route: 065
  5. MENS ROGAINE EXTRA STRENGTH [Suspect]
     Active Substance: MINOXIDIL
     Indication: ALOPECIA
     Dosage: 1/2 CAPFUL; 1X PER DAY AT NIGHT.
     Route: 061

REACTIONS (3)
  - Hair texture abnormal [Recovering/Resolving]
  - Contraindication to medical treatment [Unknown]
  - Wrong patient received medication [Unknown]
